FAERS Safety Report 8685799 (Version 2)
Quarter: 2013Q4

REPORT INFORMATION
  Report Type: Spontaneous
  Country: US (occurrence: US)
  Receive Date: 20120726
  Receipt Date: 20131101
  Transmission Date: 20140711
  Serious: No
  Sender: FDA-Public Use
  Company Number: US-009507513-1207USA007540

PATIENT
  Age: 42 Year
  Sex: Male

DRUGS (1)
  1. CLARITIN REDITABS 12HR [Suspect]
     Indication: SEASONAL ALLERGY
     Dosage: 5 MG, BID
     Route: 048
     Dates: start: 201205, end: 201205

REACTIONS (2)
  - Condition aggravated [Recovered/Resolved]
  - Drug ineffective [Unknown]
